FAERS Safety Report 19184628 (Version 1)
Quarter: 2021Q2

REPORT INFORMATION
  Report Type: Spontaneous
  Country: US (occurrence: US)
  Receive Date: 20210426
  Receipt Date: 20210426
  Transmission Date: 20210717
  Serious: Yes (Hospitalization)
  Sender: FDA-Public Use
  Company Number: None

PATIENT
  Age: 63 Year
  Sex: Female

DRUGS (1)
  1. AVONEX [Suspect]
     Active Substance: INTERFERON BETA-1A
     Indication: MULTIPLE SCLEROSIS
     Route: 030
     Dates: start: 20190912

REACTIONS (7)
  - Chromaturia [None]
  - Weight decreased [None]
  - Renal function test abnormal [None]
  - Haematochezia [None]
  - Abdominal pain [None]
  - Intra-abdominal haemorrhage [None]
  - Hepatic enzyme increased [None]

NARRATIVE: CASE EVENT DATE: 20210213
